FAERS Safety Report 17201937 (Version 6)
Quarter: 2023Q4

REPORT INFORMATION
  Report Type: Spontaneous
  Country: US (occurrence: US)
  Receive Date: 20191226
  Receipt Date: 20231201
  Transmission Date: 20240109
  Serious: Yes (Other)
  Sender: FDA-Public Use
  Company Number: US-PFIZER INC-2019552571

PATIENT
  Age: 65 Year
  Sex: Male
  Weight: 93.424 kg

DRUGS (5)
  1. XELJANZ [Suspect]
     Active Substance: TOFACITINIB CITRATE
     Indication: Colitis ulcerative
     Dosage: 10 MG, 2X/DAY
     Dates: start: 20190101
  2. PREDNISONE [Concomitant]
     Active Substance: PREDNISONE
     Dosage: 0.25 MG, DAILY
  3. BYSTOLIC [Concomitant]
     Active Substance: NEBIVOLOL HYDROCHLORIDE
     Dosage: 10 MG, DAILY
  4. OXYCODONE [Concomitant]
     Active Substance: OXYCODONE
     Dosage: 10 MG, DAILY
  5. IRON [Concomitant]
     Active Substance: IRON
     Dosage: UNK

REACTIONS (5)
  - Erectile dysfunction [Not Recovered/Not Resolved]
  - Herpes simplex [Not Recovered/Not Resolved]
  - Therapeutic product effect incomplete [Unknown]
  - Depression [Not Recovered/Not Resolved]
  - Blood pressure abnormal [Unknown]
